FAERS Safety Report 4365011-3 (Version None)
Quarter: 2004Q2

REPORT INFORMATION
  Report Type: 
  Country: None (occurrence: None)
  Receive Date: 20040521
  Receipt Date: 20040430
  Transmission Date: 20050107
  Serious: Yes (Life-Threatening, Other)
  Sender: FDA-Public Use
  Company Number: GBS040414824

PATIENT
  Age: 62 Year
  Sex: Female

DRUGS (2)
  1. RALOXIFENE HCL [Suspect]
     Indication: OSTEOPOROSIS
     Dosage: 60 MG/1 DAY
     Dates: start: 19990101, end: 20020501
  2. ADCAL-D3 [Concomitant]

REACTIONS (1)
  - BREAST CANCER [None]
